FAERS Safety Report 4457045-5 (Version None)
Quarter: 2004Q3

REPORT INFORMATION
  Report Type: 
  Country: None (occurrence: None)
  Receive Date: 20040921
  Receipt Date: 20040907
  Transmission Date: 20050211
  Serious: Yes (Life-Threatening, Hospitalization, Other)
  Sender: FDA-Public Use
  Company Number: S04-GER-03970-01

PATIENT
  Age: 78 Year
  Sex: Female

DRUGS (9)
  1. CITALOPRAM HYDROBROMIDE [Suspect]
     Indication: DEPRESSION
     Dosage: 10 MG QD
     Dates: start: 20040805, end: 20040819
  2. CITALOPRAM HYDROBROMIDE [Suspect]
     Indication: DEPRESSION
     Dates: start: 20040831
  3. PLAVIX [Suspect]
     Indication: CAROTID ARTERY STENOSIS
     Dosage: 75 MG QD
     Dates: start: 20040701, end: 20040101
  4. PLAVIX [Suspect]
     Indication: CAROTID ARTERY STENOSIS
     Dates: start: 20040819
  5. EUSAPRIM [Suspect]
     Indication: URINARY TRACT INFECTION
     Dates: start: 20040810, end: 20040815
  6. SIMVASTATIN [Suspect]
     Indication: HYPERCHOLESTEROLAEMIA
     Dosage: 40 MG QD
     Dates: start: 20040723, end: 20040819
  7. TRAMADOL HCL [Suspect]
     Indication: PAIN
     Dosage: 50 MG BID
     Dates: start: 20040730, end: 20040819
  8. LISINOPRIL [Suspect]
     Dosage: 2.5 MG QD
  9. PIPAMPERONE [Concomitant]

REACTIONS (5)
  - AGRANULOCYTOSIS [None]
  - BLOOD ALKALINE PHOSPHATASE INCREASED [None]
  - BLOOD CREATININE INCREASED [None]
  - PLATELET COUNT DECREASED [None]
  - WHITE BLOOD CELL COUNT DECREASED [None]
